FAERS Safety Report 7516693-6 (Version None)
Quarter: 2011Q2

REPORT INFORMATION
  Report Type: 
  Country: None (occurrence: None)
  Receive Date: 20110523
  Receipt Date: 20110329
  Transmission Date: 20111010
  Serious: No
  Sender: FDA-Public Use
  Company Number: 201103071

PATIENT
  Age: 8 Year
  Sex: Female

DRUGS (1)
  1. TESTIM [Suspect]
     Dosage: TRANSDERMAL
     Route: 062
     Dates: start: 20110325

REACTIONS (1)
  - ACCIDENTAL EXPOSURE [None]
